FAERS Safety Report 11852777 (Version 1)
Quarter: 2015Q4

REPORT INFORMATION
  Report Type: Spontaneous
  Country: US (occurrence: US)
  Receive Date: 20151218
  Receipt Date: 20151218
  Transmission Date: 20160305
  Serious: Yes (Hospitalization)
  Sender: FDA-Public Use
  Company Number: US-BAYER-2015-488986

PATIENT
  Age: 78 Year
  Sex: Male
  Weight: 86.17 kg

DRUGS (3)
  1. LISINOPRIL. [Concomitant]
     Active Substance: LISINOPRIL
  2. TRAMADOL. [Concomitant]
     Active Substance: TRAMADOL
  3. PAIN STOPPER EXTRA [Suspect]
     Active Substance: ACETAMINOPHEN\ASPIRIN\CAFFEINE\SALICYLAMIDE
     Indication: BACK PAIN
     Dosage: 18 DF, UNK
     Route: 048
     Dates: start: 20151213

REACTIONS (6)
  - Nausea [Recovered/Resolved]
  - Asthenia [Recovered/Resolved]
  - Accidental overdose [None]
  - Dizziness [Recovered/Resolved]
  - Somnolence [Recovered/Resolved]
  - Lethargy [Recovered/Resolved]

NARRATIVE: CASE EVENT DATE: 20151213
